FAERS Safety Report 15563918 (Version 2)
Quarter: 2018Q4

REPORT INFORMATION
  Report Type: Report from Study
  Country: None (occurrence: US)
  Receive Date: 20181030
  Receipt Date: 20181106
  Transmission Date: 20190205
  Serious: Yes (Hospitalization)
  Sender: FDA-Public Use
  Company Number: US-ABBVIE-18K-163-2535862-00

PATIENT
  Sex: Female
  Weight: 61.29 kg

DRUGS (3)
  1. FOLIC ACID. [Concomitant]
     Active Substance: FOLIC ACID
     Indication: ARTHRITIS
  2. HUMIRA [Suspect]
     Active Substance: ADALIMUMAB
     Indication: RHEUMATOID ARTHRITIS
     Route: 058
     Dates: start: 2017, end: 201809
  3. METHOTREXATE. [Concomitant]
     Active Substance: METHOTREXATE
     Indication: ARTHRITIS

REACTIONS (10)
  - Haemothorax [Recovered/Resolved]
  - Blood sodium increased [Recovered/Resolved]
  - Pneumonia [Unknown]
  - Haemorrhage [Unknown]
  - Amnesia [Unknown]
  - Rib fracture [Recovered/Resolved]
  - Hepatic enzyme increased [Unknown]
  - Pneumonia [Recovered/Resolved]
  - Abdominal pain [Recovered/Resolved]
  - Intra-abdominal haematoma [Recovered/Resolved]

NARRATIVE: CASE EVENT DATE: 2018
